FAERS Safety Report 7718606-0 (Version None)
Quarter: 2011Q3

REPORT INFORMATION
  Report Type: 
  Country: None (occurrence: None)
  Receive Date: 20110830
  Receipt Date: 20101220
  Transmission Date: 20111222
  Serious: Yes (Other)
  Sender: FDA-Public Use
  Company Number: DE-BAYER-2011-077653

PATIENT
  Sex: Female

DRUGS (8)
  1. YASMIN [Suspect]
     Indication: ORAL CONTRACEPTION
     Dosage: UNK
     Dates: start: 20110201, end: 20110201
  2. ACYCLOVIR [Concomitant]
     Dosage: 1 DF, PRN
     Route: 048
  3. DROSPIRENONE AND ETHINYL ESTRADIOL [Suspect]
     Indication: ORAL CONTRACEPTION
     Dosage: UNK
     Dates: start: 20110501, end: 20110101
  4. MAXIM [Suspect]
     Indication: ORAL CONTRACEPTION
     Dosage: 1 DF, QD
     Route: 048
     Dates: start: 20110801
  5. IBUPROFEN [Concomitant]
     Indication: PAIN
     Dosage: 1 DF, PRN
     Route: 048
  6. BELARA [Suspect]
     Indication: ORAL CONTRACEPTION
     Dosage: UNK
     Dates: start: 20110201, end: 20110501
  7. PERENTEROL [YEAST DRIED] [Concomitant]
     Indication: LIPID METABOLISM DISORDER
     Dosage: 250 MG, PRN
     Route: 048
     Dates: start: 20100701
  8. VALETTE [Suspect]
     Indication: ORAL CONTRACEPTION
     Dosage: 1 DF, QD
     Route: 048
     Dates: start: 20101001, end: 20110101

REACTIONS (16)
  - MENORRHAGIA [None]
  - DEPRESSED MOOD [None]
  - GASTROINTESTINAL INFECTION [None]
  - PAIN IN EXTREMITY [None]
  - ABDOMINAL DISCOMFORT [None]
  - DIARRHOEA [None]
  - HYPERHIDROSIS [None]
  - VITAMIN B12 DEFICIENCY [None]
  - BREAST DISCOMFORT [None]
  - NAUSEA [None]
  - METRORRHAGIA [None]
  - FLUID RETENTION [None]
  - ABNORMAL WITHDRAWAL BLEEDING [None]
  - PRURITUS [None]
  - VOMITING [None]
  - WEIGHT INCREASED [None]
